FAERS Safety Report 9538479 (Version 2)
Quarter: 2014Q1

REPORT INFORMATION
  Report Type: Spontaneous
  Country: US (occurrence: None)
  Receive Date: 20130510
  Receipt Date: 20131112
  Transmission Date: 20141002
  Serious: No
  Sender: FDA-Public Use
  Company Number: US-011041

PATIENT
  Age: 55 Year
  Sex: Male
  Weight: 104.33 kg

DRUGS (4)
  1. PICO-SALAX [Suspect]
     Indication: COLONOSCOPY
     Dosage: (ONE PACKET AT 17:00; SECOND PACKET AT 23:00)
     Dates: start: 20130225, end: 20130225
  2. PICO-SALAX [Suspect]
     Indication: BOWEL PREPARATION
     Dosage: (ONE PACKET AT 17:00; SECOND PACKET AT 23:00)
     Dates: start: 20130225, end: 20130225
  3. CRESTOR [Concomitant]
  4. EFFIENT [Concomitant]

REACTIONS (1)
  - Drug ineffective [None]
